FAERS Safety Report 5849077-7 (Version None)
Quarter: 2008Q3

REPORT INFORMATION
  Report Type: 
  Country: None (occurrence: None)
  Receive Date: 20080819
  Receipt Date: 20080811
  Transmission Date: 20090109
  Serious: Yes (Hospitalization, Other)
  Sender: FDA-Public Use
  Company Number: PHEH2008US07066

PATIENT
  Sex: Female
  Weight: 131.52 kg

DRUGS (13)
  1. TEKTURNA [Suspect]
     Dosage: 300 UNK, QD
     Dates: start: 20080429, end: 20080801
  2. DIOVAN [Suspect]
     Dosage: 320 UNK, QD
     Dates: start: 20080429, end: 20080801
  3. VOLTAREN [Suspect]
     Dosage: UNK
     Dates: start: 20080429, end: 20080801
  4. LIPITOR [Concomitant]
     Dosage: 20 UNK, UNK
  5. ACTOS ^LILLY^ [Concomitant]
     Dosage: 45 UNK, UNK
  6. GLUCOVANCE [Concomitant]
  7. NEXIUM [Concomitant]
     Dosage: 40 UNK, UNK
  8. TOPROL-XL [Concomitant]
     Dosage: 50 UNK, UNK
  9. KLONOPIN [Concomitant]
     Dosage: 10 UNK, UNK
  10. NASACORT [Concomitant]
  11. NEURONTIN [Concomitant]
  12. HYDROCHLOROTHIAZIDE [Concomitant]
     Dosage: 25 UNK, UNK
  13. WELCHOL [Concomitant]

REACTIONS (4)
  - BLOOD POTASSIUM ABNORMAL [None]
  - CREATININE RENAL CLEARANCE DECREASED [None]
  - HYPERCALCAEMIA [None]
  - RENAL FAILURE ACUTE [None]
